FAERS Safety Report 6151234-X (Version None)
Quarter: 2009Q2

REPORT INFORMATION
  Report Type: 
  Country: None (occurrence: None)
  Receive Date: 20090410
  Receipt Date: 20090408
  Transmission Date: 20091009
  Serious: Yes (Hospitalization)
  Sender: FDA-Public Use
  Company Number: FR-BRISTOL-MYERS SQUIBB COMPANY-14294003

PATIENT
  Age: 46 Year
  Sex: Female

DRUGS (5)
  1. TAXOL [Suspect]
     Route: 042
     Dates: start: 20080710, end: 20080710
  2. SOLU-MEDROL [Suspect]
     Route: 042
     Dates: start: 20080703
  3. DURAGESIC-100 [Suspect]
     Dosage: DOSAGE FORM - PATCH, ALSO GIVEN DOSE-1 PATCH EVERY 3 DAYS
     Route: 062
     Dates: start: 20080708
  4. ZOLPIDEM [Concomitant]
     Dosage: FREQ-EVERY EVENING
     Dates: start: 20080703
  5. FUNGIZONE [Concomitant]
     Dates: start: 20080707, end: 20080713

REACTIONS (1)
  - MYOSITIS [None]
